FAERS Safety Report 4282150-6 (Version None)
Quarter: 2004Q1

REPORT INFORMATION
  Report Type: 
  Country: None (occurrence: None)
  Receive Date: 20040130
  Receipt Date: 20031028
  Transmission Date: 20041129
  Serious: Yes (Other)
  Sender: FDA-Public Use
  Company Number: 200319439US

PATIENT
  Sex: Female
  Weight: 68.2 kg

DRUGS (2)
  1. LOVENOX [Suspect]
     Indication: PROTEIN S DEFICIENCY
     Dates: start: 20030101, end: 20030620
  2. HEPARIN [Concomitant]
     Dosage: DOSE: UNK
     Dates: start: 20030621

REACTIONS (7)
  - CONTUSION [None]
  - HAEMORRHAGE [None]
  - INJECTION SITE HAEMORRHAGE [None]
  - INJECTION SITE PAIN [None]
  - PREMATURE BABY [None]
  - SPINAL HAEMATOMA [None]
  - VENOUS INJURY [None]
